FAERS Safety Report 25776087 (Version 2)
Quarter: 2025Q3

REPORT INFORMATION
  Report Type: Spontaneous
  Country: US (occurrence: US)
  Receive Date: 20250909
  Receipt Date: 20250916
  Transmission Date: 20251020
  Serious: Yes (Other)
  Sender: AUROBINDO
  Company Number: US-AUROBINDO-AUR-APL-2025-044845

PATIENT
  Age: 76 Year
  Sex: Male

DRUGS (5)
  1. MITOMYCIN [Suspect]
     Active Substance: MITOMYCIN
     Indication: Prophylaxis
     Route: 065
  2. MITOMYCIN [Suspect]
     Active Substance: MITOMYCIN
     Route: 057
  3. MITOMYCIN [Suspect]
     Active Substance: MITOMYCIN
     Route: 065
  4. LIDOCAINE [Concomitant]
     Active Substance: LIDOCAINE
     Indication: Product used for unknown indication
     Route: 065
  5. EPINEPHRINE [Concomitant]
     Active Substance: EPINEPHRINE
     Indication: Product used for unknown indication
     Route: 065

REACTIONS (2)
  - Scleromalacia [Unknown]
  - Blebitis [Unknown]
